FAERS Safety Report 7526236-9 (Version None)
Quarter: 2011Q2

REPORT INFORMATION
  Report Type: 
  Country: None (occurrence: None)
  Receive Date: 20110606
  Receipt Date: 20110527
  Transmission Date: 20111010
  Serious: Yes (Hospitalization, Disabling, Other)
  Sender: FDA-Public Use
  Company Number: PHHY2011FR46204

PATIENT
  Age: 17 Year
  Sex: Female

DRUGS (4)
  1. VINORELBINE [Suspect]
     Indication: CHEMOTHERAPY
     Dosage: UNK
     Dates: start: 20110401
  2. IFOSFAMIDE [Suspect]
     Indication: CHEMOTHERAPY
     Dosage: UNK
     Dates: start: 20110401
  3. MITOGUAZONE [Suspect]
     Indication: CHEMOTHERAPY
     Dosage: UNK
     Dates: start: 20110401
  4. ETOPOSIDE [Suspect]
     Indication: CHEMOTHERAPY
     Dosage: UNK
     Dates: start: 20110401

REACTIONS (20)
  - EPIDERMAL NECROSIS [None]
  - ERYTHEMA [None]
  - OEDEMA PERIPHERAL [None]
  - PROTEINURIA [None]
  - RASH MACULAR [None]
  - HYPERAESTHESIA [None]
  - BLOOD PRESSURE DECREASED [None]
  - PAIN IN EXTREMITY [None]
  - PARAESTHESIA [None]
  - TACHYCARDIA [None]
  - SKIN REACTION [None]
  - INFLAMMATION [None]
  - ASTHENIA [None]
  - MYALGIA [None]
  - DERMATITIS BULLOUS [None]
  - PANNICULITIS [None]
  - ORAL PAIN [None]
  - BLISTER [None]
  - HYPONATRAEMIA [None]
  - HYPOTHERMIA [None]
